FAERS Safety Report 10148836 (Version 1)
Quarter: 2014Q2

REPORT INFORMATION
  Report Type: Spontaneous
  Country: ES (occurrence: ES)
  Receive Date: 20140502
  Receipt Date: 20140502
  Transmission Date: 20141212
  Serious: Yes (Hospitalization)
  Sender: FDA-Public Use
  Company Number: ES-ROCHE-1387587

PATIENT
  Age: 53 Year
  Sex: Female

DRUGS (2)
  1. CEFTRIAXONE [Suspect]
     Indication: PYREXIA
     Route: 042
     Dates: start: 20131105, end: 20131112
  2. CYMEVENE [Suspect]
     Indication: PYREXIA
     Route: 042
     Dates: start: 20131103, end: 20131111

REACTIONS (1)
  - Hypertransaminasaemia [Recovered/Resolved]
